FAERS Safety Report 15098836 (Version 4)
Quarter: 2018Q3

REPORT INFORMATION
  Report Type: Spontaneous
  Country: US (occurrence: US)
  Receive Date: 20180702
  Receipt Date: 20180821
  Transmission Date: 20181010
  Serious: Yes (Death, Hospitalization)
  Sender: FDA-Public Use
  Company Number: US-VIFOR (INTERNATIONAL) INC.-VIT-2018-06409

PATIENT
  Age: 67 Year
  Sex: Male

DRUGS (22)
  1. ALLOPURINOL. [Concomitant]
     Active Substance: ALLOPURINOL
  2. LACTOBACILLUS ACIDOPHILUS [Concomitant]
     Active Substance: LACTOBACILLUS ACIDOPHILUS
  3. MAGNESIUM HYDROXIDE. [Concomitant]
     Active Substance: MAGNESIUM HYDROXIDE
  4. GLIPIZIDE. [Concomitant]
     Active Substance: GLIPIZIDE
  5. LASIX [Concomitant]
     Active Substance: FUROSEMIDE
  6. MYLANTA [Concomitant]
     Active Substance: ALUMINUM HYDROXIDE\DIMETHICONE\MAGNESIUM HYDROXIDE
  7. VELTASSA [Suspect]
     Active Substance: PATIROMER
     Indication: HYPERKALAEMIA
     Route: 048
  8. ARANESP [Concomitant]
     Active Substance: DARBEPOETIN ALFA
  9. ACETYLSALICYLIC ACID [Concomitant]
     Active Substance: ASPIRIN
  10. FOLIC ACID. [Concomitant]
     Active Substance: FOLIC ACID
  11. HYDRALAZINE HYDROCHLORIDE. [Concomitant]
     Active Substance: HYDRALAZINE HYDROCHLORIDE
  12. METOLAZONE. [Concomitant]
     Active Substance: METOLAZONE
  13. METOPROLOL TARTRATE. [Concomitant]
     Active Substance: METOPROLOL TARTRATE
  14. OXYCODONE HYDROCHLORIDE. [Concomitant]
     Active Substance: OXYCODONE HYDROCHLORIDE
  15. CYANOCOBALAMIN. [Concomitant]
     Active Substance: CYANOCOBALAMIN
  16. FERROUS SULFATE. [Concomitant]
     Active Substance: FERROUS SULFATE
  17. PLAVIX [Concomitant]
     Active Substance: CLOPIDOGREL BISULFATE
  18. AMLODIPINE BESILATE [Concomitant]
     Active Substance: AMLODIPINE BESYLATE
  19. COLECALCIFEROL [Concomitant]
     Active Substance: CHOLECALCIFEROL
  20. CEPACOL SORE THROAT NOS [Concomitant]
     Active Substance: BENZOCAINE\MENTHOL OR DYCLONINE HYDROCHLORIDE\GLYCERIN
  21. VELTASSA [Suspect]
     Active Substance: PATIROMER
     Route: 048
     Dates: start: 20180510, end: 2018
  22. CLONIDINE HYDROCHLORIDE. [Concomitant]
     Active Substance: CLONIDINE HYDROCHLORIDE

REACTIONS (5)
  - Off label use [Unknown]
  - Hospitalisation [Unknown]
  - Death [Fatal]
  - Constipation [Unknown]
  - Hyperkalaemia [Unknown]

NARRATIVE: CASE EVENT DATE: 2018
